FAERS Safety Report 19905209 (Version 1)
Quarter: 2021Q4

REPORT INFORMATION
  Report Type: Spontaneous
  Country: CN (occurrence: CN)
  Receive Date: 20211001
  Receipt Date: 20211001
  Transmission Date: 20220303
  Serious: Yes (Hospitalization, Other)
  Sender: FDA-Public Use
  Company Number: 2021A751314

PATIENT
  Age: 65 Year
  Sex: Female
  Weight: 70 kg

DRUGS (1)
  1. DAPAGLIFLOZIN [Suspect]
     Active Substance: DAPAGLIFLOZIN
     Indication: Diabetes mellitus
     Route: 048
     Dates: start: 20210118, end: 20210122

REACTIONS (9)
  - Vision blurred [Unknown]
  - Urine abnormality [Unknown]
  - Hypoaesthesia [Unknown]
  - Intermittent claudication [Unknown]
  - Peripheral arterial occlusive disease [Unknown]
  - Dysuria [Unknown]
  - Pollakiuria [Unknown]
  - Limb discomfort [Not Recovered/Not Resolved]
  - Pain in extremity [Recovering/Resolving]

NARRATIVE: CASE EVENT DATE: 20210122
